FAERS Safety Report 8736995 (Version 2)
Quarter: 2013Q4

REPORT INFORMATION
  Report Type: Spontaneous
  Country: US (occurrence: US)
  Receive Date: 20120822
  Receipt Date: 20131203
  Transmission Date: 20140711
  Serious: Yes (Hospitalization)
  Sender: FDA-Public Use
  Company Number: US-ASTRAZENECA-2011SE60754

PATIENT
  Age: 82 Year
  Sex: Female
  Weight: 109.8 kg

DRUGS (20)
  1. SYMBICORT [Suspect]
     Indication: ASTHMA
     Dosage: 160/4.5 MCG, 2 PUFFS TWO TIMES A DAY
     Route: 055
     Dates: start: 2009
  2. SYMBICORT [Suspect]
     Indication: DYSPNOEA
     Dosage: 160/4.5 MCG, 2 PUFFS TWO TIMES A DAY
     Route: 055
     Dates: start: 2009
  3. SYMBICORT [Suspect]
     Indication: ASTHMA
     Dosage: 320MCG, BID
     Route: 055
     Dates: start: 2003, end: 20131121
  4. SYMBICORT [Suspect]
     Indication: DYSPNOEA
     Dosage: 320MCG, BID
     Route: 055
     Dates: start: 2003, end: 20131121
  5. ALBUTEROL [Concomitant]
  6. ALLOPURINOL [Concomitant]
     Indication: GOUT
  7. CORDARONE [Concomitant]
  8. ASPIRIN [Concomitant]
  9. CALCIUM CHEWABLE TABLETS [Concomitant]
  10. GLUCOSAMINE [Concomitant]
     Indication: ARTHROPATHY
  11. HYDRALAZINE [Concomitant]
  12. HYDROCODONE [Concomitant]
  13. ISOSORBIDE [Concomitant]
  14. LEVOTHYROXINE [Concomitant]
  15. PAROXETINE [Concomitant]
  16. POTASSIUM [Concomitant]
  17. TORSEMIDE [Concomitant]
  18. CLARITIN [Concomitant]
     Indication: MULTIPLE ALLERGIES
  19. CETERIZINE [Concomitant]
     Indication: MULTIPLE ALLERGIES
  20. MULTIVITAMIN [Concomitant]

REACTIONS (7)
  - Skin ulcer [Unknown]
  - Poisoning [Unknown]
  - Loss of consciousness [Unknown]
  - Gait disturbance [Unknown]
  - Body height decreased [Unknown]
  - Dysgeusia [Unknown]
  - Drug dose omission [Not Recovered/Not Resolved]
